FAERS Safety Report 25043561 (Version 1)
Quarter: 2025Q1

REPORT INFORMATION
  Report Type: Spontaneous
  Country: US (occurrence: US)
  Receive Date: 20250306
  Receipt Date: 20250306
  Transmission Date: 20250409
  Serious: No
  Sender: MERCK SHARP & DOHME LLC
  Company Number: US-009507513-2258298

PATIENT
  Sex: Male

DRUGS (3)
  1. IMIPENEM [Suspect]
     Active Substance: IMIPENEM
     Indication: Pneumonia
  2. AMIKACIN [Suspect]
     Active Substance: AMIKACIN
     Indication: Pneumonia
  3. CEFOXITIN [Suspect]
     Active Substance: CEFOXITIN SODIUM

REACTIONS (1)
  - Multiple-drug resistance [Unknown]
